FAERS Safety Report 7951894-4 (Version None)
Quarter: 2011Q4

REPORT INFORMATION
  Report Type: 
  Country: None (occurrence: None)
  Receive Date: 20111201
  Receipt Date: 20111201
  Transmission Date: 20120403
  Serious: Yes (Other)
  Sender: FDA-Public Use
  Company Number: None

PATIENT
  Age: 60 Year
  Sex: Female
  Weight: 92.532 kg

DRUGS (1)
  1. CIPROFLOXACIN [Suspect]
     Indication: OTITIS MEDIA
     Dosage: 1
     Route: 048
     Dates: start: 20111121, end: 20111129

REACTIONS (6)
  - ABASIA [None]
  - MUSCLE SPASMS [None]
  - FATIGUE [None]
  - ARTHRALGIA [None]
  - MUSCLE TIGHTNESS [None]
  - ARTHRITIS [None]
